FAERS Safety Report 26078834 (Version 1)
Quarter: 2025Q4

REPORT INFORMATION
  Report Type: Spontaneous
  Country: US (occurrence: US)
  Receive Date: 20251123
  Receipt Date: 20251123
  Transmission Date: 20260118
  Serious: No
  Sender: GALPHARM INTERNATIONAL
  Company Number: US-PERRIGO-25US001775

PATIENT
  Sex: Female

DRUGS (3)
  1. OPILL [Suspect]
     Active Substance: NORGESTREL
     Indication: Product used for unknown indication
     Dosage: 0.075 MG, QAM
     Route: 048
     Dates: start: 202501, end: 20250203
  2. OPILL [Suspect]
     Active Substance: NORGESTREL
     Dosage: 0.075 MG, SINGLE
     Route: 048
     Dates: start: 20250204, end: 20250204
  3. OPILL [Suspect]
     Active Substance: NORGESTREL
     Dosage: 0.075 MG, QAM
     Route: 048
     Dates: start: 20250205

REACTIONS (2)
  - Vaginal haemorrhage [Not Recovered/Not Resolved]
  - Inappropriate schedule of product administration [Unknown]

NARRATIVE: CASE EVENT DATE: 20250201
